FAERS Safety Report 10009685 (Version 1)
Quarter: 2014Q1

REPORT INFORMATION
  Report Type: Spontaneous
  Country: US (occurrence: US)
  Receive Date: 20140312
  Receipt Date: 20140312
  Transmission Date: 20141002
  Serious: No
  Sender: FDA-Public Use
  Company Number: US-INCYTE CORPORATION-2012IN002517

PATIENT
  Age: 54 Year
  Sex: Male

DRUGS (3)
  1. JAKAFI [Suspect]
     Indication: POLYCYTHAEMIA VERA
     Dosage: 10 MG, BID
     Route: 048
     Dates: start: 201210
  2. HYDROXYUREA [Concomitant]
  3. NYQUIL [Concomitant]

REACTIONS (2)
  - Epistaxis [Unknown]
  - Nasopharyngitis [Not Recovered/Not Resolved]
